FAERS Safety Report 18403821 (Version 2)
Quarter: 2020Q4

REPORT INFORMATION
  Report Type: Spontaneous
  Country: BG (occurrence: BG)
  Receive Date: 20201020
  Receipt Date: 20201029
  Transmission Date: 20210114
  Serious: Yes (Other)
  Sender: FDA-Public Use
  Company Number: BG-ROCHE-2697225

PATIENT
  Age: 58 Year
  Sex: Female

DRUGS (3)
  1. DEEP RELIEF [Concomitant]
     Indication: RHEUMATOID ARTHRITIS
     Dosage: ONGOING; EXTERNAL, UNGUENT 2-3 TIMES/DAY
     Dates: start: 2020
  2. METHOTREXATE. [Concomitant]
     Active Substance: METHOTREXATE
     Indication: RHEUMATOID ARTHRITIS
     Dates: start: 2016, end: 202009
  3. ROACTEMRA [Suspect]
     Active Substance: TOCILIZUMAB
     Indication: RHEUMATOID ARTHRITIS
     Route: 058

REACTIONS (2)
  - Double stranded DNA antibody positive [Recovering/Resolving]
  - Gastrointestinal disorder [Unknown]

NARRATIVE: CASE EVENT DATE: 20201001
